FAERS Safety Report 6614385 (Version 7)
Quarter: 2013Q3

REPORT INFORMATION
  Report Type: Spontaneous
  Country: JP (occurrence: JP)
  Receive Date: 20080414
  Receipt Date: 20130926
  Transmission Date: 20140515
  Serious: Yes (Death, Hospitalization)
  Sender: FDA-Public Use
  Company Number: JP-AMGEN-US273188

PATIENT
  Age: 70 Year
  Sex: Female
  Weight: 46 kg

DRUGS (3)
  1. ENBREL [Suspect]
     Indication: RHEUMATOID ARTHRITIS
     Dosage: 25.0 MG, 2X/WEEK
     Route: 058
     Dates: start: 20061002, end: 20080324
  2. ISALON [Concomitant]
     Dosage: 2 UNK, QD
     Route: 048
     Dates: start: 20040706
  3. LOXONIN [Concomitant]
     Dosage: 2 UNK, QD
     Route: 048
     Dates: start: 20040302

REACTIONS (3)
  - Respiratory failure [Unknown]
  - Septic shock [Unknown]
  - Pneumonia staphylococcal [Fatal]
